FAERS Safety Report 21118759 (Version 1)
Quarter: 2022Q3

REPORT INFORMATION
  Report Type: Spontaneous
  Country: US (occurrence: US)
  Receive Date: 20220722
  Receipt Date: 20220722
  Transmission Date: 20221026
  Serious: Yes (Other)
  Sender: FDA-Public Use
  Company Number: US-SUNOVION-2022SUN002131

PATIENT
  Sex: Female

DRUGS (6)
  1. LATUDA [Suspect]
     Active Substance: LURASIDONE HYDROCHLORIDE
     Indication: Bipolar disorder
     Dosage: 40 MG
     Route: 048
  2. LATUDA [Suspect]
     Active Substance: LURASIDONE HYDROCHLORIDE
     Dosage: 20 MG
     Route: 048
     Dates: start: 20220711
  3. PRISTIQ EXTENDED-RELEASE [Concomitant]
     Active Substance: DESVENLAFAXINE SUCCINATE
     Dosage: UNK
     Route: 065
     Dates: end: 202203
  4. TRILEPTAL [Concomitant]
     Active Substance: OXCARBAZEPINE
     Dosage: UNK
     Route: 065
  5. MIRAPEX [Concomitant]
     Active Substance: PRAMIPEXOLE DIHYDROCHLORIDE
     Dosage: UNK
     Route: 065
     Dates: start: 202205
  6. PROZAC [Concomitant]
     Active Substance: FLUOXETINE HYDROCHLORIDE
     Dosage: UNK
     Route: 065
     Dates: start: 202205

REACTIONS (1)
  - Tardive dyskinesia [Not Recovered/Not Resolved]
